FAERS Safety Report 5325152-0 (Version None)
Quarter: 2007Q2

REPORT INFORMATION
  Report Type: 
  Country: None (occurrence: None)
  Receive Date: 20070515
  Receipt Date: 20070510
  Transmission Date: 20071010
  Serious: Yes (Hospitalization)
  Sender: FDA-Public Use
  Company Number: FR-AVENTIS-200710191FR

PATIENT
  Age: 85 Year
  Sex: Female
  Weight: 61 kg

DRUGS (8)
  1. RIFADIN [Suspect]
     Indication: DRUG USE FOR UNKNOWN INDICATION
     Route: 048
     Dates: start: 20061211, end: 20061217
  2. IRBESARTAN [Concomitant]
     Indication: ESSENTIAL HYPERTENSION
     Route: 048
     Dates: end: 20061217
  3. TAVANIC [Concomitant]
     Indication: DRUG USE FOR UNKNOWN INDICATION
     Route: 048
     Dates: end: 20061217
  4. ZOCOR [Concomitant]
     Route: 048
  5. SERESTA [Concomitant]
     Indication: DRUG USE FOR UNKNOWN INDICATION
     Route: 048
  6. FLUDEX                             /00340101/ [Concomitant]
     Indication: ESSENTIAL HYPERTENSION
     Route: 048
     Dates: end: 20061212
  7. DAFALGAN                           /00020001/ [Concomitant]
     Indication: DRUG USE FOR UNKNOWN INDICATION
  8. FLAVAN [Concomitant]
     Indication: DRUG USE FOR UNKNOWN INDICATION
     Route: 048

REACTIONS (4)
  - HAEMATURIA [None]
  - MELAENA [None]
  - PURPURA [None]
  - THROMBOCYTOPENIA [None]
